FAERS Safety Report 7866123-X (Version None)
Quarter: 2011Q4

REPORT INFORMATION
  Report Type: 
  Country: None (occurrence: None)
  Receive Date: 20111028
  Receipt Date: 20110427
  Transmission Date: 20120403
  Serious: No
  Sender: FDA-Public Use
  Company Number: US-GLAXOSMITHKLINE-A0924768A

PATIENT
  Age: 62 Year
  Sex: Female

DRUGS (3)
  1. NEBULIZER [Concomitant]
  2. ADVAIR DISKUS 100/50 [Suspect]
     Indication: CHRONIC OBSTRUCTIVE PULMONARY DISEASE
     Dosage: 1PUFF PER DAY
     Route: 055
     Dates: start: 20100101
  3. CONCURRENT MEDICATIONS [Concomitant]

REACTIONS (2)
  - WHEEZING [None]
  - PRODUCT QUALITY ISSUE [None]
